FAERS Safety Report 9749144 (Version 1)
Quarter: 2013Q4

REPORT INFORMATION
  Report Type: Spontaneous
  Country: US (occurrence: US)
  Receive Date: 20131212
  Receipt Date: 20131212
  Transmission Date: 20140711
  Serious: No
  Sender: FDA-Public Use
  Company Number: US-TEVA-392920USA

PATIENT
  Age: 30 Year
  Sex: Female
  Weight: 58.11 kg

DRUGS (2)
  1. PARAGARD 380A [Suspect]
     Indication: CONTRACEPTION
     Route: 015
     Dates: end: 20121220
  2. ADVIL [Concomitant]
     Indication: MUSCLE SPASMS

REACTIONS (2)
  - Abdominal pain [Unknown]
  - Device breakage [Recovered/Resolved]
